FAERS Safety Report 7333639-4 (Version None)
Quarter: 2011Q1

REPORT INFORMATION
  Report Type: 
  Country: None (occurrence: None)
  Receive Date: 20110306
  Receipt Date: 20110222
  Transmission Date: 20110831
  Serious: Yes (Other)
  Sender: FDA-Public Use
  Company Number: US-ELI_LILLY_AND_COMPANY-US201004001262

PATIENT
  Sex: Male

DRUGS (2)
  1. FORTEO [Suspect]
     Dosage: 20 UG, DAILY (1/D)
     Dates: start: 20090101
  2. FORTEO [Suspect]
     Indication: OSTEOPOROSIS
     Dosage: 20 UG, DAILY (1/D)
     Dates: start: 20091001

REACTIONS (9)
  - SKIN ULCER [None]
  - HYPERSENSITIVITY [None]
  - DRY SKIN [None]
  - HEART RATE INCREASED [None]
  - OEDEMA PERIPHERAL [None]
  - RENAL FAILURE [None]
  - PRURITUS [None]
  - MALAISE [None]
  - DRUG DOSE OMISSION [None]
